FAERS Safety Report 8072979-0 (Version None)
Quarter: 2011Q4

REPORT INFORMATION
  Report Type: 
  Country: None (occurrence: None)
  Receive Date: 20111221
  Receipt Date: 20110830
  Transmission Date: 20120403
  Serious: Yes (Hospitalization)
  Sender: FDA-Public Use
  Company Number: PHEH2011US02904

PATIENT
  Age: 61 Year
  Sex: Female
  Weight: 74 kg

DRUGS (2)
  1. EXJADE [Suspect]
     Indication: HAEMOCHROMATOSIS
     Dosage: 1500 MG, UNK, ORAL
     Route: 048
     Dates: start: 20060801, end: 20110405
  2. EXJADE [Suspect]
     Indication: IRON METABOLISM DISORDER
     Dosage: 1500 MG, UNK, ORAL
     Route: 048
     Dates: start: 20060801, end: 20110405

REACTIONS (3)
  - RENAL FAILURE ACUTE [None]
  - NAUSEA [None]
  - VOMITING [None]
